FAERS Safety Report 24244932 (Version 2)
Quarter: 2024Q3

REPORT INFORMATION
  Report Type: Spontaneous
  Country: TW (occurrence: TW)
  Receive Date: 20240823
  Receipt Date: 20240827
  Transmission Date: 20241016
  Serious: Yes (Death)
  Sender: ELI LILLY AND CO
  Company Number: TW-ELI_LILLY_AND_COMPANY-TW202408012260

PATIENT
  Age: 40 Year
  Sex: Female

DRUGS (1)
  1. TALTZ [Suspect]
     Active Substance: IXEKIZUMAB
     Indication: Psoriatic arthropathy
     Dosage: 80 MG, OTHER (EVERY 4 WEEKS)
     Route: 058
     Dates: start: 20221109, end: 20240423

REACTIONS (1)
  - Infection [Fatal]

NARRATIVE: CASE EVENT DATE: 20240813
